FAERS Safety Report 13320118 (Version 2)
Quarter: 2017Q2

REPORT INFORMATION
  Report Type: Spontaneous
  Country: HU (occurrence: HU)
  Receive Date: 20170310
  Receipt Date: 20170407
  Transmission Date: 20170830
  Serious: Yes (Other)
  Sender: FDA-Public Use
  Company Number: HU-BRISTOL-MYERS SQUIBB COMPANY-BMS-2017-010697

PATIENT
  Age: 77 Year
  Sex: Male
  Weight: 77 kg

DRUGS (3)
  1. BISOPROLOL RATIOPHARM [Concomitant]
     Active Substance: BISOPROLOL
     Indication: ATRIAL FIBRILLATION
     Dosage: 5 MG, QD
     Route: 048
     Dates: start: 201509
  2. ELIQUIS [Suspect]
     Active Substance: APIXABAN
     Indication: CEREBROVASCULAR ACCIDENT PROPHYLAXIS
     Dosage: 5 MG, BID
     Route: 048
     Dates: start: 201509
  3. ROXERA [Concomitant]
     Indication: HYPERCHOLESTEROLAEMIA
     Dosage: 15 MG, QD
     Route: 048
     Dates: start: 201509

REACTIONS (7)
  - Gastritis erosive [Not Recovered/Not Resolved]
  - Occult blood positive [Not Recovered/Not Resolved]
  - Off label use [Unknown]
  - Haemorrhage urinary tract [Not Recovered/Not Resolved]
  - Calculus bladder [Not Recovered/Not Resolved]
  - Anaemia [Not Recovered/Not Resolved]
  - Large intestine polyp [Not Recovered/Not Resolved]

NARRATIVE: CASE EVENT DATE: 201604
